FAERS Safety Report 8121689-X (Version None)
Quarter: 2012Q1

REPORT INFORMATION
  Report Type: 
  Country: None (occurrence: None)
  Receive Date: 20120207
  Receipt Date: 20120207
  Transmission Date: 20120608
  Serious: No
  Sender: FDA-Public Use
  Company Number: None

PATIENT
  Sex: Female
  Weight: 75.2971 kg

DRUGS (2)
  1. LITHIUM CARBONATE [Suspect]
     Dosage: 2 A DAY
  2. ZYPREXA [Suspect]
     Dosage: 2 A DAY
     Dates: start: 20040101, end: 20100101

REACTIONS (1)
  - SURGERY [None]
